FAERS Safety Report 8770365 (Version 2)
Quarter: 2012Q4

REPORT INFORMATION
  Report Type: Report from Study
  Country: JP (occurrence: JP)
  Receive Date: 20120906
  Receipt Date: 20121129
  Transmission Date: 20130627
  Serious: Yes (Hospitalization)
  Sender: FDA-Public Use
  Company Number: JP-VERTEX PHARMACEUTICAL INC.-AE-2012-009771

PATIENT
  Age: 60 Year
  Sex: Male

DRUGS (14)
  1. VX-950 (TELAPREVIR) [Suspect]
     Indication: HEPATITIS C
     Dosage: 2250 mg, qd
     Route: 048
     Dates: start: 20120515, end: 20120624
  2. RIBAVIRIN [Suspect]
     Indication: HEPATITIS C
     Dosage: 1000 mg, qd
     Route: 048
     Dates: start: 20120515, end: 20120618
  3. RIBAVIRIN [Suspect]
     Dosage: 800 mg, qd
     Route: 048
     Dates: start: 20120619, end: 20120626
  4. PEGINTERFERON ALFA-2B [Suspect]
     Indication: HEPATITIS C
     Dosage: 1.5 ?g/kg, qw
     Route: 058
     Dates: start: 20120515, end: 20120604
  5. PEGINTERFERON ALFA-2B [Suspect]
     Dosage: 100 ?g, qw
     Route: 058
     Dates: start: 20120605, end: 20120625
  6. BLOPRESS [Concomitant]
     Dosage: 12 mg, qd
     Route: 048
     Dates: start: 20091110
  7. GASMOTIN [Concomitant]
     Dosage: 15 mg, qd
     Route: 048
     Dates: start: 20120529, end: 20120724
  8. ALOSITOL [Concomitant]
     Dosage: 200 mg, qd
     Route: 048
     Dates: start: 20120529, end: 20120724
  9. TAKEPRON [Concomitant]
     Dosage: 15 mg, qd
     Route: 048
     Dates: start: 20120625, end: 20121105
  10. PREDONINE                          /00016201/ [Concomitant]
     Dosage: 40 mg, qd
     Route: 048
     Dates: start: 20120625, end: 20121002
  11. ALLEGRA [Concomitant]
     Dosage: 120 mg, qd
     Route: 048
     Dates: start: 20120626, end: 20120706
  12. DAIPHEN [Concomitant]
     Dosage: 1 DF, qd
     Route: 048
     Dates: start: 20120709, end: 20121105
  13. URSO                               /00465701/ [Concomitant]
     Dosage: 600 mg, qd
     Route: 048
     Dates: start: 20120725, end: 20120730
  14. URSO                               /00465701/ [Concomitant]
     Dosage: 900 mg, qd
     Route: 048
     Dates: start: 20120731

REACTIONS (1)
  - Erythema multiforme [Recovered/Resolved]
